FAERS Safety Report 7153305-8 (Version None)
Quarter: 2010Q4

REPORT INFORMATION
  Report Type: 
  Country: None (occurrence: None)
  Receive Date: 20101213
  Receipt Date: 20101202
  Transmission Date: 20110411
  Serious: Yes (Other)
  Sender: FDA-Public Use
  Company Number: SE-ASTRAZENECA-2010SE57242

PATIENT
  Age: 59 Year
  Sex: Female

DRUGS (4)
  1. NOLVADEX [Suspect]
     Indication: BREAST CANCER FEMALE
     Route: 048
     Dates: start: 20081029, end: 20081211
  2. TENORMIN [Concomitant]
     Route: 048
  3. OPTINATE [Concomitant]
     Route: 048
  4. ZOLPIDEM TARTRATE [Concomitant]
     Route: 048

REACTIONS (3)
  - FLUID RETENTION [None]
  - HYPERAESTHESIA [None]
  - PAIN [None]
